FAERS Safety Report 8314978-7 (Version None)
Quarter: 2012Q2

REPORT INFORMATION
  Report Type: 
  Country: None (occurrence: None)
  Receive Date: 20120426
  Receipt Date: 20120106
  Transmission Date: 20120825
  Serious: No
  Sender: FDA-Public Use
  Company Number: US-MUTUAL PHARMACEUTICAL COMPANY, INC.-CLCY20120008

PATIENT
  Sex: Female
  Weight: 69.462 kg

DRUGS (9)
  1. LASIX [Concomitant]
     Indication: HYPERTENSION
     Route: 048
  2. WARFARIN SODIUM [Concomitant]
     Route: 048
  3. ULORIC [Concomitant]
     Indication: GOUT
     Route: 048
  4. INDOCIN [Concomitant]
     Indication: GOUT
     Route: 048
  5. COLCRYS [Suspect]
     Indication: GOUT
     Route: 048
     Dates: start: 20111026
  6. POTASSIUM CHLORIDE [Concomitant]
     Indication: HYPERTENSION
     Route: 048
  7. CALCIUM WITH VITAMIN D [Concomitant]
     Indication: ROUTINE HEALTH MAINTENANCE
     Route: 048
  8. WARFARIN SODIUM [Concomitant]
     Indication: PROPHYLAXIS
     Route: 048
  9. TYLENOL (CAPLET) [Concomitant]
     Indication: PAIN
     Route: 048

REACTIONS (3)
  - RECTAL HAEMORRHAGE [None]
  - MUSCULAR WEAKNESS [None]
  - DIARRHOEA [None]
